FAERS Safety Report 23998609 (Version 1)
Quarter: 2024Q2

REPORT INFORMATION
  Report Type: Report from Study
  Country: AU (occurrence: AU)
  Receive Date: 20240621
  Receipt Date: 20240621
  Transmission Date: 20240715
  Serious: Yes (Life-Threatening, Hospitalization)
  Sender: FDA-Public Use
  Company Number: AU-MYLANLABS-2024M1054954

PATIENT

DRUGS (4)
  1. ACETAMINOPHEN [Suspect]
     Active Substance: ACETAMINOPHEN
     Indication: Product used for unknown indication
     Dosage: 6000 MILLIGRAM
     Route: 048
  2. OXYCODONE [Suspect]
     Active Substance: OXYCODONE\OXYCODONE HYDROCHLORIDE
     Indication: Product used for unknown indication
     Dosage: 880 MILLIGRAM
     Route: 048
  3. CODEINE [Suspect]
     Active Substance: CODEINE
     Indication: Product used for unknown indication
     Dosage: 360 MILLIGRAM
     Route: 048
  4. ORPHENADRINE [Suspect]
     Active Substance: ORPHENADRINE
     Indication: Intentional overdose
     Dosage: UNK, SUSTAINED-RELEASE, CUMULATIVE DOSE: 10000 MG
     Route: 048

REACTIONS (6)
  - Bradypnoea [Unknown]
  - Toxicity to various agents [Unknown]
  - Poisoning deliberate [Unknown]
  - Intentional overdose [Unknown]
  - Delirium [Unknown]
  - Mydriasis [Unknown]
